FAERS Safety Report 18190469 (Version 2)
Quarter: 2020Q3

REPORT INFORMATION
  Report Type: Report from Study
  Country: PK (occurrence: PK)
  Receive Date: 20200824
  Receipt Date: 20200903
  Transmission Date: 20201103
  Serious: Yes (Death, Hospitalization)
  Sender: FDA-Public Use
  Company Number: NVSC2020PK233360

PATIENT
  Age: 59 Year
  Sex: Female

DRUGS (2)
  1. CERTICAN [Suspect]
     Active Substance: EVEROLIMUS
     Indication: TRANSPLANT
     Dosage: 0.75 MG, BID
     Route: 048
     Dates: start: 20190225
  2. NORVASC [Concomitant]
     Active Substance: AMLODIPINE BESYLATE
     Indication: HYPERTENSION
     Dosage: 10 MG, QD (10D)
     Route: 048
     Dates: start: 20200224, end: 2020

REACTIONS (6)
  - Renal failure [Fatal]
  - Urine output decreased [Fatal]
  - Lethargy [Fatal]
  - Confusional state [Fatal]
  - Oedema [Fatal]
  - Flank pain [Fatal]
